FAERS Safety Report 13012835 (Version 1)
Quarter: 2016Q4

REPORT INFORMATION
  Report Type: Spontaneous
  Country: US (occurrence: US)
  Receive Date: 20161208
  Receipt Date: 20161208
  Transmission Date: 20170207
  Serious: Yes (Hospitalization)
  Sender: FDA-Public Use
  Company Number: None

PATIENT
  Sex: Male
  Weight: 107 kg

DRUGS (3)
  1. LENALIDOMIDE (CC-5013) [Suspect]
     Active Substance: LENALIDOMIDE
     Dates: end: 20161121
  2. VELCADE [Suspect]
     Active Substance: BORTEZOMIB
     Dates: end: 20161118
  3. DEXAMETHASONE. [Suspect]
     Active Substance: DEXAMETHASONE
     Dates: end: 20161118

REACTIONS (2)
  - Blood magnesium decreased [None]
  - Blood calcium decreased [None]

NARRATIVE: CASE EVENT DATE: 20161115
